FAERS Safety Report 17843267 (Version 2)
Quarter: 2020Q2

REPORT INFORMATION
  Report Type: Spontaneous
  Country: HU (occurrence: HU)
  Receive Date: 20200530
  Receipt Date: 20200620
  Transmission Date: 20200714
  Serious: Yes (Hospitalization, Other)
  Sender: FDA-Public Use
  Company Number: NVSC2020HU148762

PATIENT
  Age: 1 Year
  Sex: Female

DRUGS (2)
  1. FLIXOTIDE [Concomitant]
     Active Substance: FLUTICASONE PROPIONATE
     Indication: PRODUCT USED FOR UNKNOWN INDICATION
     Dosage: UNK UNK, SPARY (IN THE MORNING AND EVENING)
     Route: 065
  2. MONTELUKAST [Suspect]
     Active Substance: MONTELUKAST SODIUM
     Indication: PRODUCT USED FOR UNKNOWN INDICATION
     Dosage: UNK UNK, BID (IN THE MORNING AND EVENING)
     Route: 065

REACTIONS (6)
  - Dyspnoea [Unknown]
  - Rhinorrhoea [Unknown]
  - Ill-defined disorder [Unknown]
  - Sneezing [Unknown]
  - Malaise [Unknown]
  - Bronchostenosis [Unknown]
